FAERS Safety Report 5823889-8 (Version None)
Quarter: 2008Q3

REPORT INFORMATION
  Report Type: 
  Country: None (occurrence: None)
  Receive Date: 20080724
  Receipt Date: 20080716
  Transmission Date: 20090109
  Serious: Yes (Other)
  Sender: FDA-Public Use
  Company Number: 2008018355

PATIENT
  Sex: Male

DRUGS (2)
  1. ZYRTEC [Suspect]
     Indication: URTICARIA
     Dosage: ORAL
     Route: 048
  2. CETIRIZINE HCL [Suspect]
     Indication: URTICARIA
     Dosage: ORAL
     Route: 048

REACTIONS (4)
  - DRUG DISPENSING ERROR [None]
  - DRUG INEFFECTIVE [None]
  - MEDICATION ERROR [None]
  - WRONG DRUG ADMINISTERED [None]
